FAERS Safety Report 25820132 (Version 1)
Quarter: 2025Q3

REPORT INFORMATION
  Report Type: Spontaneous
  Country: US (occurrence: US)
  Receive Date: 20250919
  Receipt Date: 20250919
  Transmission Date: 20251020
  Serious: Yes (Hospitalization, Other)
  Sender: ABBVIE
  Company Number: US-ABBVIE-6461356

PATIENT
  Age: 67 Year
  Sex: Female

DRUGS (1)
  1. HUMIRA [Suspect]
     Active Substance: ADALIMUMAB
     Indication: Rheumatoid arthritis
     Dosage: FORM STRENGTH: 40 MILLIGRAM
     Route: 058
     Dates: start: 2023

REACTIONS (13)
  - Musculoskeletal disorder [Recovering/Resolving]
  - Gait disturbance [Recovered/Resolved]
  - Injury associated with device [Unknown]
  - Device use error [Not Recovered/Not Resolved]
  - Nerve compression [Recovering/Resolving]
  - Fall [Recovered/Resolved]
  - Injection site haemorrhage [Unknown]
  - Cartilage injury [Recovering/Resolving]
  - Back pain [Recovering/Resolving]
  - Device use error [Not Recovered/Not Resolved]
  - Mobility decreased [Recovered/Resolved]
  - Gait inability [Recovered/Resolved]
  - Arthralgia [Not Recovered/Not Resolved]

NARRATIVE: CASE EVENT DATE: 20230101
